FAERS Safety Report 7927690-0 (Version None)
Quarter: 2011Q4

REPORT INFORMATION
  Report Type: 
  Country: None (occurrence: None)
  Receive Date: 20111116
  Receipt Date: 20111108
  Transmission Date: 20120403
  Serious: Yes (Death)
  Sender: FDA-Public Use
  Company Number: CIP-2011-00938

PATIENT

DRUGS (2)
  1. CARBOPLATIN [Suspect]
     Indication: OVARIAN CANCER RECURRENT
     Dosage: 6MG/ML/MIN (DAY 1 OF 21-DAY CYCLE),30-MINUTE INFUSION
  2. PEMETREXED [Suspect]
     Indication: OVARIAN CANCER RECURRENT
     Dosage: (500 MILLIGRAM/MILLILITERS,DAY 1 OF 21-DAY CYCLE),10-MINUTE INFUSION

REACTIONS (1)
  - MULTI-ORGAN FAILURE [None]
